FAERS Safety Report 6493253-X (Version None)
Quarter: 2009Q4

REPORT INFORMATION
  Report Type: 
  Country: None (occurrence: None)
  Receive Date: 20091214
  Receipt Date: 20091202
  Transmission Date: 20100525
  Serious: Yes (Hospitalization, Other)
  Sender: FDA-Public Use
  Company Number: US-AMGEN-QUU377960

PATIENT
  Sex: Male

DRUGS (1)
  1. ENBREL [Suspect]
     Indication: RHEUMATOID ARTHRITIS
     Route: 058

REACTIONS (12)
  - BACK PAIN [None]
  - BODY HEIGHT DECREASED [None]
  - CONTUSION [None]
  - HIP ARTHROPLASTY [None]
  - HIP SURGERY [None]
  - NERVE COMPRESSION [None]
  - OEDEMA PERIPHERAL [None]
  - OSTEOPOROSIS [None]
  - PERIORBITAL HAEMATOMA [None]
  - PLATELET COUNT DECREASED [None]
  - SPINAL COMPRESSION FRACTURE [None]
  - VERTEBROPLASTY [None]
